FAERS Safety Report 12780013 (Version 1)
Quarter: 2016Q3

REPORT INFORMATION
  Report Type: Spontaneous
  Country: US (occurrence: US)
  Receive Date: 20160925
  Receipt Date: 20160925
  Transmission Date: 20161109
  Serious: Yes (Other)
  Sender: FDA-Public Use
  Company Number: None

PATIENT
  Age: 55 Year
  Sex: Female
  Weight: 79.65 kg

DRUGS (8)
  1. VENAFAXINE [Concomitant]
  2. PHENTERMINE. [Concomitant]
     Active Substance: PHENTERMINE
  3. MAGNESIUM [Concomitant]
     Active Substance: MAGNESIUM
  4. SUMATRIPTAN SUCCINATE. [Concomitant]
     Active Substance: SUMATRIPTAN SUCCINATE
  5. FOLIC ACID. [Concomitant]
     Active Substance: FOLIC ACID
  6. CIPROFLOXACIN. [Suspect]
     Active Substance: CIPROFLOXACIN
     Indication: ANIMAL BITE
     Route: 048
  7. VITAMIN D [Concomitant]
     Active Substance: CHOLECALCIFEROL
  8. C [Concomitant]

REACTIONS (3)
  - Joint swelling [None]
  - Pain [None]
  - Pain in extremity [None]

NARRATIVE: CASE EVENT DATE: 20160422
